FAERS Safety Report 18974214 (Version 1)
Quarter: 2021Q1

REPORT INFORMATION
  Report Type: Report from Study
  Country: US (occurrence: US)
  Receive Date: 20210305
  Receipt Date: 20210305
  Transmission Date: 20210420
  Serious: Yes (Hospitalization, Other)
  Sender: FDA-Public Use
  Company Number: US-JNJFOC-A-US2020-201867

PATIENT
  Age: 76 Year
  Sex: Female
  Weight: 52.15 kg

DRUGS (2)
  1. TADALAFIL. [Concomitant]
     Active Substance: TADALAFIL
  2. OPSUMIT [Suspect]
     Active Substance: MACITENTAN
     Indication: PULMONARY ARTERIAL HYPERTENSION
     Dosage: 10 MG, QD
     Route: 048

REACTIONS (15)
  - Asthenia [Unknown]
  - Vomiting [Unknown]
  - Angina pectoris [Unknown]
  - Bladder cancer [Unknown]
  - Diarrhoea [Unknown]
  - Bladder neoplasm surgery [Unknown]
  - Hospitalisation [Unknown]
  - Illness [Unknown]
  - Migraine [Unknown]
  - Limb discomfort [Unknown]
  - Bronchitis [Unknown]
  - Drug withdrawal syndrome [Unknown]
  - Tremor [Unknown]
  - Palpitations [Unknown]
  - Blood pressure increased [Unknown]

NARRATIVE: CASE EVENT DATE: 202005
